FAERS Safety Report 9387241 (Version 1)
Quarter: 2013Q3

REPORT INFORMATION
  Report Type: Spontaneous
  Country: US (occurrence: US)
  Receive Date: 20130708
  Receipt Date: 20130708
  Transmission Date: 20140515
  Serious: Yes (Hospitalization, Other)
  Sender: FDA-Public Use
  Company Number: US-SUN PHARMACEUTICAL INDUSTRIES LTD-2013SUN00892

PATIENT
  Age: 30 Year
  Sex: Male

DRUGS (5)
  1. NALTREXONE HYDROCHLORIDE 50 MG TABLET [Suspect]
     Indication: DETOXIFICATION
     Dosage: 100 MG, UNK
     Route: 065
  2. NALOXONE [Suspect]
     Indication: DETOXIFICATION
     Dosage: 80 MG, UNK
     Route: 065
  3. PROPOFOL [Suspect]
     Indication: DETOXIFICATION
     Route: 065
  4. MIDAZOLAM [Suspect]
     Indication: DETOXIFICATION
     Route: 065
  5. ISOFLURANE [Suspect]
     Indication: GENERAL ANAESTHESIA
     Route: 065

REACTIONS (4)
  - Pneumomediastinum [Unknown]
  - Pulmonary oedema [Unknown]
  - Respiratory distress [Unknown]
  - Mental status changes [Recovering/Resolving]
